FAERS Safety Report 17966582 (Version 1)
Quarter: 2020Q2

REPORT INFORMATION
  Report Type: Report from Study
  Country: None (occurrence: US)
  Receive Date: 20200630
  Receipt Date: 20200630
  Transmission Date: 20200714
  Serious: Yes (Other)
  Sender: FDA-Public Use
  Company Number: US-ABBVIE-20K-163-3457656-00

PATIENT
  Age: 70 Year
  Sex: Female

DRUGS (5)
  1. VENCLEXTA [Suspect]
     Active Substance: VENETOCLAX
     Indication: ACUTE MYELOID LEUKAEMIA
     Dosage: DAY 1
     Route: 048
     Dates: start: 20200601, end: 20200601
  2. VENCLEXTA [Suspect]
     Active Substance: VENETOCLAX
     Dosage: DAY  TO DAY 28
     Route: 048
     Dates: start: 20200602, end: 202006
  3. LEVOTHYROXINE. [Concomitant]
     Active Substance: LEVOTHYROXINE
     Indication: PRODUCT USED FOR UNKNOWN INDICATION
  4. VENCLEXTA [Suspect]
     Active Substance: VENETOCLAX
     Dosage: DAY 2
     Route: 048
     Dates: start: 20200602, end: 20200602
  5. SERTRALINE [Concomitant]
     Active Substance: SERTRALINE HYDROCHLORIDE
     Indication: PRODUCT USED FOR UNKNOWN INDICATION

REACTIONS (3)
  - Fatigue [Unknown]
  - Adverse drug reaction [Unknown]
  - Blood test abnormal [Unknown]

NARRATIVE: CASE EVENT DATE: 202006
